FAERS Safety Report 5368577-X (Version None)
Quarter: 2007Q2

REPORT INFORMATION
  Report Type: 
  Country: None (occurrence: None)
  Receive Date: 20070625
  Receipt Date: 20070612
  Transmission Date: 20071010
  Serious: Yes (Hospitalization)
  Sender: FDA-Public Use
  Company Number: FR-JNJFOC-20070602708

PATIENT
  Age: 2 Month
  Sex: Male
  Weight: 4.4 kg

DRUGS (2)
  1. DAKTARIN [Suspect]
     Route: 002
  2. DAKTARIN [Suspect]
     Indication: CANDIDIASIS
     Route: 002

REACTIONS (1)
  - DYSPHAGIA [None]
